FAERS Safety Report 17189214 (Version 1)
Quarter: 2019Q4

REPORT INFORMATION
  Report Type: Spontaneous
  Country: PT (occurrence: PT)
  Receive Date: 20191223
  Receipt Date: 20191223
  Transmission Date: 20200122
  Serious: Yes (Other)
  Sender: FDA-Public Use
  Company Number: PT-AUROBINDO-AUR-APL-2019-106516

PATIENT

DRUGS (3)
  1. LAMIVUDINE. [Suspect]
     Active Substance: LAMIVUDINE
     Indication: HIV-2 INFECTION
     Dosage: UNK
     Route: 065
     Dates: start: 2007, end: 2014
  2. LOPINAVIR/RITONAVIR [Suspect]
     Active Substance: LOPINAVIR\RITONAVIR
     Indication: HIV-2 INFECTION
     Dosage: UNK
     Route: 065
     Dates: start: 2007, end: 2014
  3. ZIDOVUDINE. [Suspect]
     Active Substance: ZIDOVUDINE
     Indication: HIV-2 INFECTION
     Dosage: UNK
     Route: 065
     Dates: start: 2007, end: 2014

REACTIONS (2)
  - Pathogen resistance [Unknown]
  - Virologic failure [Unknown]
